FAERS Safety Report 21585306 (Version 2)
Quarter: 2024Q4

REPORT INFORMATION
  Report Type: Spontaneous
  Country: US (occurrence: US)
  Receive Date: 20221111
  Receipt Date: 20241122
  Transmission Date: 20250115
  Serious: No
  Sender: NOVO NORDISK
  Company Number: US-NOVOPROD-873766

PATIENT
  Sex: Female
  Weight: 58.05 kg

DRUGS (3)
  1. TRESIBA [Suspect]
     Active Substance: INSULIN DEGLUDEC
     Indication: Product used for unknown indication
     Dosage: 20 IU, QD
     Route: 058
     Dates: start: 201703
  2. TOUJEO [Concomitant]
     Active Substance: INSULIN GLARGINE
     Indication: Product used for unknown indication
     Dosage: UNK
     Route: 058
  3. AFREZZA [Concomitant]
     Active Substance: INSULIN HUMAN
     Indication: Product used for unknown indication
     Dosage: UNK
     Dates: start: 201708

REACTIONS (6)
  - Dyspnoea [Recovered/Resolved]
  - Cough [Recovered/Resolved]
  - Chest discomfort [Not Recovered/Not Resolved]
  - Throat irritation [Unknown]
  - Dysphonia [Unknown]
  - Chest discomfort [Unknown]
